FAERS Safety Report 5030933-7 (Version None)
Quarter: 2006Q2

REPORT INFORMATION
  Report Type: 
  Country: None (occurrence: None)
  Receive Date: 20060504
  Receipt Date: 20060213
  Transmission Date: 20061013
  Serious: No
  Sender: FDA-Public Use
  Company Number: 200610876BWH

PATIENT
  Age: 30 Month
  Sex: Female

DRUGS (1)
  1. LEVITRA [Suspect]
     Dosage: ORAL
     Route: 048
     Dates: start: 20060213

REACTIONS (1)
  - NO ADVERSE DRUG EFFECT [None]
